FAERS Safety Report 24794602 (Version 1)
Quarter: 2024Q4

REPORT INFORMATION
  Report Type: Report from Study
  Country: US (occurrence: US)
  Receive Date: 20241231
  Receipt Date: 20241231
  Transmission Date: 20250114
  Serious: Yes (Hospitalization)
  Sender: ALKERMES
  Company Number: US-ALKERMES INC.-ALK-2024-003296

PATIENT

DRUGS (8)
  1. BUPRENORPHINE [Suspect]
     Active Substance: BUPRENORPHINE
     Indication: Drug dependence
     Dosage: 380 MILLIGRAM, Q3WK (WEEKS 0, 3, 6)
     Route: 030
  2. INVESTIGATIONAL PRODUCT [Suspect]
     Active Substance: INVESTIGATIONAL PRODUCT
     Indication: Drug dependence
     Dosage: 380 MILLIGRAM, Q3WK (WEEKS 0, 3, 6)
     Route: 030
  3. VIVITROL [Suspect]
     Active Substance: NALTREXONE
     Indication: Drug dependence
     Dosage: 380 MILLIGRAM, Q3WK (WEEKS 0, 3, 6)
     Route: 030
  4. VIVITROL [Suspect]
     Active Substance: NALTREXONE
     Indication: Drug dependence
     Dosage: 380 MILLIGRAM, Q3WK (WEEKS 0, 3, 6)
     Route: 030
  5. BUPRENORPHINE [Suspect]
     Active Substance: BUPRENORPHINE
     Dosage: 300 MILLIGRAM, Q4WK
     Route: 058
  6. INVESTIGATIONAL PRODUCT [Suspect]
     Active Substance: INVESTIGATIONAL PRODUCT
     Dosage: 300 MILLIGRAM, Q4WK
     Route: 058
  7. VIVITROL [Suspect]
     Active Substance: NALTREXONE
     Dosage: 300 MILLIGRAM, Q4WK
     Route: 058
  8. VIVITROL [Suspect]
     Active Substance: NALTREXONE
     Dosage: 300 MILLIGRAM, Q4WK
     Route: 058

REACTIONS (1)
  - Hospitalisation [Unknown]

NARRATIVE: CASE EVENT DATE: 20241223
